FAERS Safety Report 10450227 (Version 2)
Quarter: 2014Q4

REPORT INFORMATION
  Report Type: Spontaneous
  Country: JP (occurrence: JP)
  Receive Date: 20140912
  Receipt Date: 20141031
  Transmission Date: 20150528
  Serious: Yes (Life-Threatening)
  Sender: FDA-Public Use
  Company Number: JP-ASTRAZENECA-2014SE66503

PATIENT
  Age: 54 Year
  Sex: Male

DRUGS (10)
  1. DIPRIVAN [Suspect]
     Active Substance: PROPOFOL
     Indication: SEDATION
     Dosage: DOSE UNKNOWN
     Route: 042
  2. DANTRIUM [Suspect]
     Active Substance: DANTROLENE SODIUM
     Indication: MUSCLE TWITCHING
     Dosage: DOSE UNKNOWN
     Route: 065
  3. FENTANYL. [Suspect]
     Active Substance: FENTANYL
     Indication: SEDATION
     Dosage: DOSE UNKNOWN
     Route: 042
  4. PENICILLIN G [Suspect]
     Active Substance: PENICILLIN G
     Indication: TETANUS
     Dosage: DOSE UNKNOWN
     Route: 065
  5. MIDAZOLAM [Suspect]
     Active Substance: MIDAZOLAM\MIDAZOLAM HYDROCHLORIDE
     Indication: SEDATION
     Dosage: DOSE UNKNOWN
     Route: 042
  6. THIOPENTAL SODIUM. [Suspect]
     Active Substance: THIOPENTAL SODIUM
     Indication: SEDATION
     Dosage: DOSE UNKNOWN
     Route: 042
  7. MAGNESIUM SULFATE HYDRATE [Suspect]
     Active Substance: MAGNESIUM SULFATE HEPTAHYDRATE
     Indication: MUSCLE TWITCHING
     Dosage: DOSE UNKNOWN
     Route: 065
  8. DEXMEDETOMIDINE HYDROCHLORIDE. [Suspect]
     Active Substance: DEXMEDETOMIDINE HYDROCHLORIDE
     Indication: SEDATION
     Dosage: DOSE UNKNOWN
     Route: 042
  9. AMPICILLIN AND SULBACTAM [Suspect]
     Active Substance: AMPICILLIN SODIUM\SULBACTAM SODIUM
     Dosage: DOSE UNKNOWN
     Route: 065
  10. VANCOMYCIN [Suspect]
     Active Substance: VANCOMYCIN
     Dosage: DOSE UNKNOWN
     Route: 065

REACTIONS (1)
  - Histiocytosis haematophagic [Recovered/Resolved]

NARRATIVE: CASE EVENT DATE: 2011
